FAERS Safety Report 18843503 (Version 1)
Quarter: 2021Q1

REPORT INFORMATION
  Report Type: Spontaneous
  Country: US (occurrence: US)
  Receive Date: 20210203
  Receipt Date: 20210203
  Transmission Date: 20210419
  Serious: No
  Sender: FDA-Public Use
  Company Number: US-EXELIXIS-CABO-20029451

PATIENT
  Sex: Female

DRUGS (1)
  1. CABOMETYX [Suspect]
     Active Substance: CABOZANTINIB S-MALATE
     Indication: NEUROBLASTOMA
     Dosage: UNK

REACTIONS (3)
  - Hyperparathyroidism secondary [Unknown]
  - Blood thyroid stimulating hormone increased [Unknown]
  - Off label use [Unknown]
